FAERS Safety Report 8623054 (Version 2)
Quarter: 2013Q1

REPORT INFORMATION
  Report Type: Spontaneous
  Country: US (occurrence: US)
  Receive Date: 20120620
  Receipt Date: 20130104
  Transmission Date: 20140127
  Serious: No
  Sender: FDA-Public Use
  Company Number: US-ASTRAZENECA-2012SE35638

PATIENT
  Age: 49 Year
  Sex: Male

DRUGS (4)
  1. NEXIUM [Suspect]
     Route: 048
     Dates: start: 20110617
  2. HYDROCODON ACETAMINOP [Concomitant]
     Dosage: TAKE ONE TABLET BY MOUTH EVERY 4 TO 6 HOURS AS NEEDED FOR PAIN
     Dates: start: 20110625
  3. ALPRAZOLAM [Concomitant]
     Dates: start: 20110429
  4. TRAMADOL HCL [Concomitant]
     Dosage: 100 MG TAKE ONE TABLET BY MOUTH EVERY 12 HOURS AS NEEDED
     Dates: start: 20110510

REACTIONS (2)
  - Osteoporosis [Unknown]
  - Multiple fractures [Unknown]
